FAERS Safety Report 13650308 (Version 2)
Quarter: 2017Q2

REPORT INFORMATION
  Report Type: Report from Study
  Country: US (occurrence: US)
  Receive Date: 20170614
  Receipt Date: 20170619
  Transmission Date: 20170830
  Serious: Yes (Hospitalization)
  Sender: FDA-Public Use
  Company Number: US-B.I. PHARMACEUTICALS,INC./RIDGEFIELD-2017-BI-032888

PATIENT
  Age: 70 Year
  Sex: Female

DRUGS (3)
  1. SPIRIVA [Suspect]
     Active Substance: TIOTROPIUM BROMIDE MONOHYDRATE
     Indication: CHRONIC OBSTRUCTIVE PULMONARY DISEASE
     Route: 055
     Dates: start: 2007
  2. GABAPENTIN. [Concomitant]
     Active Substance: GABAPENTIN
     Indication: NECK PAIN
     Dosage: THREE TIMES DAILY;  FORM STRENGTH: 300MG; FORMULATION: TABLET
     Route: 048
  3. DIFLUCAN [Concomitant]
     Active Substance: FLUCONAZOLE
     Indication: NECK PAIN
     Dosage: TWICE DAILY;  FORMULATION: TABLET;
     Route: 048

REACTIONS (1)
  - Spinal cord compression [Recovered/Resolved]

NARRATIVE: CASE EVENT DATE: 201608
